FAERS Safety Report 6981475-0 (Version None)
Quarter: 2010Q3

REPORT INFORMATION
  Report Type: 
  Country: None (occurrence: None)
  Receive Date: 20100914
  Receipt Date: 20100831
  Transmission Date: 20110219
  Serious: Yes (Hospitalization)
  Sender: FDA-Public Use
  Company Number: TR-MYLANLABS-2010S1015966

PATIENT
  Age: 74 Year
  Sex: Male

DRUGS (1)
  1. WARFARIN SODIUM [Suspect]
     Indication: VENA CAVA INJURY
     Dosage: 1 TABLET
     Route: 048

REACTIONS (2)
  - NERVE INJURY [None]
  - SPONTANEOUS HAEMATOMA [None]
